FAERS Safety Report 7280084-6 (Version None)
Quarter: 2011Q1

REPORT INFORMATION
  Report Type: 
  Country: None (occurrence: None)
  Receive Date: 20110128
  Receipt Date: 20110120
  Transmission Date: 20110831
  Serious: Yes (Death)
  Sender: FDA-Public Use
  Company Number: 1000018341

PATIENT
  Age: 76 Year
  Sex: Female

DRUGS (9)
  1. FUROSEMIDE [Suspect]
  2. PANTOPRAZOLE SODIUM [Suspect]
  3. LORCET-HD [Suspect]
  4. ALPRAZOLAM [Suspect]
  5. BETA BLOCKER (BETA BLOCKER) [Suspect]
  6. AMPHETAMINE SULFATE [Suspect]
  7. SIMVASTATIN [Suspect]
  8. LEVOTHROID [Suspect]
  9. METHADONE (METHADONE) [Suspect]

REACTIONS (4)
  - CARDIAC ARREST [None]
  - COMPLETED SUICIDE [None]
  - RESPIRATORY ARREST [None]
  - MULTIPLE DRUG OVERDOSE INTENTIONAL [None]
